FAERS Safety Report 25252250 (Version 1)
Quarter: 2025Q2

REPORT INFORMATION
  Report Type: Spontaneous
  Country: US (occurrence: US)
  Receive Date: 20250429
  Receipt Date: 20250429
  Transmission Date: 20250717
  Serious: Yes (Hospitalization)
  Sender: MEDEXUS PHARMA
  Company Number: US-MEDEXUS PHARMA, INC.-2025MED00126

PATIENT
  Age: 79 Year
  Sex: Female

DRUGS (1)
  1. METHOTREXATE [Suspect]
     Active Substance: METHOTREXATE
     Indication: Rheumatoid arthritis

REACTIONS (3)
  - Neutropenic colitis [Recovered/Resolved]
  - Pancytopenia [Recovered/Resolved]
  - Mouth ulceration [Recovered/Resolved]
